FAERS Safety Report 5099082-6 (Version None)
Quarter: 2006Q3

REPORT INFORMATION
  Report Type: 
  Country: None (occurrence: None)
  Receive Date: 20060731
  Receipt Date: 20060104
  Transmission Date: 20061208
  Serious: Yes (Other)
  Sender: FDA-Public Use
  Company Number: 220807

PATIENT
  Age: 21 Year
  Sex: Female
  Weight: 57.1 kg

DRUGS (5)
  1. RITUXAN [Suspect]
     Indication: IDIOPATHIC THROMBOCYTOPENIC PURPURA
     Dosage: 610 MG, 1/WEEK, INTRAVENOUS
     Route: 042
     Dates: start: 20051220, end: 20060104
  2. XANAX [Concomitant]
  3. ALBUTEROL (ALBUTEROL/ALBUTEROL SULFATE) [Concomitant]
  4. LORTAB [Concomitant]
  5. PREDNISONE TAB [Concomitant]

REACTIONS (4)
  - ARTHRALGIA [None]
  - JOINT SWELLING [None]
  - RASH [None]
  - SERUM SICKNESS [None]
